FAERS Safety Report 4428735-5 (Version None)
Quarter: 2004Q3

REPORT INFORMATION
  Report Type: 
  Country: None (occurrence: None)
  Receive Date: 20040818
  Receipt Date: 20040312
  Transmission Date: 20050211
  Serious: No
  Sender: FDA-Public Use
  Company Number: US-BRISTOL-MYERS SQUIBB COMPANY-12531836

PATIENT
  Age: 70 Year
  Sex: Male
  Weight: 72 kg

DRUGS (2)
  1. TEQUIN [Suspect]
     Indication: SKIN INFECTION
     Route: 048
     Dates: start: 20040301, end: 20040301
  2. LEVAQUIN [Concomitant]

REACTIONS (1)
  - TENDONITIS [None]
